FAERS Safety Report 11186592 (Version 1)
Quarter: 2015Q2

REPORT INFORMATION
  Report Type: Report from Study
  Country: US (occurrence: US)
  Receive Date: 20150613
  Receipt Date: 20150613
  Transmission Date: 20150821
  Serious: Yes (Death, Hospitalization)
  Sender: FDA-Public Use
  Company Number: PHHO2014US012024

PATIENT
  Age: 88 Year
  Sex: Male
  Weight: 82.2 kg

DRUGS (2)
  1. AFINITOR [Suspect]
     Active Substance: EVEROLIMUS
     Indication: TRANSITIONAL CELL CARCINOMA
     Dosage: QD
     Route: 048
     Dates: start: 20140811, end: 20140826
  2. PACLITAXEL. [Suspect]
     Active Substance: PACLITAXEL
     Indication: TRANSITIONAL CELL CARCINOMA
     Dosage: DI, D8
     Route: 042
     Dates: start: 20140811, end: 20140826

REACTIONS (2)
  - Sepsis [Recovered/Resolved with Sequelae]
  - Sudden death [Fatal]

NARRATIVE: CASE EVENT DATE: 20140826
